FAERS Safety Report 8878912 (Version 2)
Quarter: 2012Q4

REPORT INFORMATION
  Report Type: 
  Country: US (occurrence: US)
  Receive Date: 20121026
  Receipt Date: 20121203
  Transmission Date: 20130627
  Serious: Yes (Other)
  Sender: FDA-Public Use
  Company Number: US-PFIZER INC-2012267271

PATIENT
  Age: 57 Year
  Sex: Female
  Weight: 79.82 kg

DRUGS (5)
  1. LYRICA [Suspect]
     Indication: NERVE INJURY
     Dosage: 150 mg, 2x/day
     Dates: start: 201210
  2. LYRICA [Suspect]
     Indication: FIBROMYALGIA
  3. FOSAMAX [Concomitant]
     Indication: ARTHRITIS
     Dosage: UNK,weekly
  4. CALCIUM [Concomitant]
     Indication: OSTEOPOROSIS PROPHYLAXIS
     Dosage: 1200 mg, 1x/day
  5. VITAMIN D [Concomitant]
     Indication: OSTEOPOROSIS PROPHYLAXIS
     Dosage: UNK,daily

REACTIONS (3)
  - Vision blurred [Not Recovered/Not Resolved]
  - Visual acuity reduced [Not Recovered/Not Resolved]
  - Dizziness [Not Recovered/Not Resolved]
